FAERS Safety Report 8225133-3 (Version None)
Quarter: 2012Q1

REPORT INFORMATION
  Report Type: 
  Country: None (occurrence: None)
  Receive Date: 20120321
  Receipt Date: 20120316
  Transmission Date: 20120608
  Serious: Yes (Death)
  Sender: FDA-Public Use
  Company Number: US-SANOFI-AVENTIS-2012SA018371

PATIENT

DRUGS (1)
  1. ENOXAPARIN SODIUM [Suspect]
     Dosage: SUBCUTANEOUS, 4000 IU, POSTOPERATIVELY

REACTIONS (1)
  - DISEASE PROGRESSION [None]
